FAERS Safety Report 7901990-2 (Version None)
Quarter: 2011Q4

REPORT INFORMATION
  Report Type: 
  Country: None (occurrence: None)
  Receive Date: 20111108
  Receipt Date: 20111024
  Transmission Date: 20120403
  Serious: Yes (Hospitalization)
  Sender: FDA-Public Use
  Company Number: US-GLAXOSMITHKLINE-A0914519A

PATIENT
  Age: 56 Year
  Sex: Female

DRUGS (1)
  1. AVANDIA [Suspect]
     Indication: DIABETES MELLITUS
     Route: 048
     Dates: start: 19990101, end: 20080901

REACTIONS (4)
  - LEFT VENTRICULAR DYSFUNCTION [None]
  - CORONARY ARTERY DISEASE [None]
  - MYOCARDIAL INFARCTION [None]
  - VITRECTOMY [None]
